FAERS Safety Report 8078554-6 (Version None)
Quarter: 2012Q1

REPORT INFORMATION
  Report Type: 
  Country: None (occurrence: None)
  Receive Date: 20120123
  Receipt Date: 20120105
  Transmission Date: 20120608
  Serious: Yes (Disabling)
  Sender: FDA-Public Use
  Company Number: 023305

PATIENT
  Age: 86 Year
  Sex: Male
  Weight: 80 kg

DRUGS (1)
  1. MACUGEN [Suspect]
     Indication: AGE-RELATED MACULAR DEGENERATION
     Dosage: 0.3MG EVERY 6 WEEKS, INTRAOCULAR
     Route: 031
     Dates: start: 20071114

REACTIONS (1)
  - VITREOUS FIBRIN [None]
